FAERS Safety Report 6492319-8 (Version None)
Quarter: 2009Q4

REPORT INFORMATION
  Report Type: 
  Country: None (occurrence: None)
  Receive Date: 20091214
  Receipt Date: 20091201
  Transmission Date: 20100525
  Serious: No
  Sender: FDA-Public Use
  Company Number: US-BAYER-200939376NA

PATIENT
  Age: 47 Year
  Sex: Female
  Weight: 71 kg

DRUGS (5)
  1. AVELOX [Suspect]
     Indication: BRONCHITIS
     Dates: start: 20091111, end: 20091111
  2. FLU SHOT [Suspect]
     Indication: DRUG USE FOR UNKNOWN INDICATION
     Dates: start: 20091111
  3. ZOLOFT [Concomitant]
  4. YAZ [Concomitant]
  5. QUAN [Concomitant]

REACTIONS (2)
  - FLUSHING [None]
  - PRURITUS [None]
